FAERS Safety Report 15206622 (Version 2)
Quarter: 2018Q3

REPORT INFORMATION
  Report Type: Spontaneous
  Country: US (occurrence: US)
  Receive Date: 20180727
  Receipt Date: 20180731
  Transmission Date: 20181010
  Serious: No
  Sender: FDA-Public Use
  Company Number: US-PFIZER INC-2018301112

PATIENT
  Age: 61 Year
  Sex: Female
  Weight: 105.2 kg

DRUGS (1)
  1. LYRICA [Suspect]
     Active Substance: PREGABALIN
     Indication: RESTLESS LEGS SYNDROME
     Dosage: 75 MG, 2X/DAY
     Route: 048

REACTIONS (3)
  - Panic disorder [Unknown]
  - Product use in unapproved indication [Unknown]
  - Insomnia [Recovered/Resolved]
